FAERS Safety Report 9211041 (Version 1)
Quarter: 2013Q2

REPORT INFORMATION
  Report Type: Spontaneous
  Country: US (occurrence: US)
  Receive Date: 20130404
  Receipt Date: 20130404
  Transmission Date: 20140414
  Serious: No
  Sender: FDA-Public Use
  Company Number: US-ASTRAZENECA-2013SE17329

PATIENT
  Sex: Male

DRUGS (4)
  1. SEROQUEL [Suspect]
     Indication: SOCIAL AVOIDANT BEHAVIOUR
     Route: 048
     Dates: start: 2006
  2. SEROQUEL [Suspect]
     Indication: DEPRESSION
     Route: 048
     Dates: start: 2006
  3. SEROQUEL [Suspect]
     Indication: SOCIAL AVOIDANT BEHAVIOUR
     Dosage: GENERIC
     Route: 048
  4. SEROQUEL [Suspect]
     Indication: DEPRESSION
     Dosage: GENERIC
     Route: 048

REACTIONS (6)
  - Disturbance in attention [Unknown]
  - Somnolence [Unknown]
  - Asthenia [Unknown]
  - Dizziness [Unknown]
  - Dry mouth [Unknown]
  - Drug ineffective [Unknown]
